FAERS Safety Report 14484510 (Version 11)
Quarter: 2020Q1

REPORT INFORMATION
  Report Type: Report from Study
  Country: CO (occurrence: CO)
  Receive Date: 20180205
  Receipt Date: 20200122
  Transmission Date: 20200409
  Serious: Yes (Other)
  Sender: FDA-Public Use
  Company Number: CO-ROCHE-2065403

PATIENT
  Age: 46 Year
  Sex: Female
  Weight: 61 kg

DRUGS (12)
  1. XOLAIR [Suspect]
     Active Substance: OMALIZUMAB
     Route: 058
  2. FEXOFENADINE HYDROCHLORIDE. [Concomitant]
     Active Substance: FEXOFENADINE HYDROCHLORIDE
     Indication: URTICARIA
     Dosage: DRUG REPORTED AS FENTRADOL
     Route: 065
  3. XOLAIR [Suspect]
     Active Substance: OMALIZUMAB
     Indication: URTICARIA
     Route: 058
     Dates: start: 20161122
  4. XOLAIR [Suspect]
     Active Substance: OMALIZUMAB
     Indication: ANGIOEDEMA
     Dosage: 300 MG, BIW (ONCE EVERY TWO WEEKS (EVERY 15 DAYS))
     Route: 058
     Dates: start: 201710
  5. XOLAIR [Suspect]
     Active Substance: OMALIZUMAB
     Route: 058
     Dates: start: 2017
  6. DEXACORT [DEXAMETHASONE] [Concomitant]
     Indication: PRODUCT USED FOR UNKNOWN INDICATION
     Dosage: 6 MG, Q12H
     Route: 065
  7. OXYBUTYNIN HYDROCHLORIDE [Concomitant]
     Active Substance: OXYBUTYNIN CHLORIDE
     Indication: PRODUCT USED FOR UNKNOWN INDICATION
     Dosage: DRUG REPORTED AS UROPRAN
     Route: 065
  8. XOLAIR [Suspect]
     Active Substance: OMALIZUMAB
     Route: 058
     Dates: start: 20190619, end: 20190619
  9. ACETAMINOPHEN AND CODEINE [Concomitant]
     Active Substance: ACETAMINOPHEN\CODEINE PHOSPHATE
     Indication: PRODUCT USED FOR UNKNOWN INDICATION
     Route: 065
  10. XOLAIR [Suspect]
     Active Substance: OMALIZUMAB
     Route: 058
     Dates: start: 20181115
  11. XOLAIR [Suspect]
     Active Substance: OMALIZUMAB
     Route: 058
     Dates: start: 20161109
  12. DEFLAZACORTE [Concomitant]
     Active Substance: DEFLAZACORT
     Indication: MIXED CONNECTIVE TISSUE DISEASE
     Dosage: 1 DF, QD
     Route: 048
     Dates: start: 2009

REACTIONS (29)
  - Psoriasis [Unknown]
  - Vitamin D deficiency [Unknown]
  - Musculoskeletal chest pain [Recovered/Resolved]
  - Pulmonary pain [Unknown]
  - Antinuclear antibody positive [Unknown]
  - Weight fluctuation [Unknown]
  - Inflammation [Unknown]
  - Skin lesion [Unknown]
  - Angioedema [Unknown]
  - Hepatic steatosis [Unknown]
  - Blepharitis [Unknown]
  - Skin plaque [Not Recovered/Not Resolved]
  - Eating disorder [Unknown]
  - Retinal dystrophy [Unknown]
  - Drug ineffective [Unknown]
  - Tracheal inflammation [Recovered/Resolved]
  - Incorrect dose administered [Unknown]
  - Blindness [Unknown]
  - Malaise [Unknown]
  - Hepatic function abnormal [Recovered/Resolved]
  - Abdominal discomfort [Recovered/Resolved]
  - Urticaria [Unknown]
  - Laryngeal inflammation [Unknown]
  - Dyspnoea [Unknown]
  - Swelling [Unknown]
  - Quality of life decreased [Unknown]
  - Haemoglobin decreased [Unknown]
  - Inappropriate schedule of product administration [Unknown]
  - Hypersensitivity [Not Recovered/Not Resolved]

NARRATIVE: CASE EVENT DATE: 20170628
